FAERS Safety Report 13660933 (Version 1)
Quarter: 2017Q2

REPORT INFORMATION
  Report Type: Spontaneous
  Country: CA (occurrence: CA)
  Receive Date: 20170616
  Receipt Date: 20170616
  Transmission Date: 20170830
  Serious: Yes (Hospitalization, Other)
  Sender: FDA-Public Use
  Company Number: CA-NOVOPROD-548855

PATIENT
  Age: 68 Year
  Sex: Female

DRUGS (1)
  1. HUMAN INSULIN [Suspect]
     Active Substance: INSULIN HUMAN
     Indication: HYPOGAMMAGLOBULINAEMIA
     Dosage: UNK
     Route: 065

REACTIONS (13)
  - Multiple organ dysfunction syndrome [Recovered/Resolved]
  - Pulmonary oedema [Recovered/Resolved]
  - Acute kidney injury [Recovered/Resolved]
  - Pyrexia [Recovered/Resolved]
  - Petechiae [Recovered/Resolved]
  - Off label use [Unknown]
  - Cough [Recovered/Resolved]
  - Extremity necrosis [Recovered/Resolved]
  - Joint swelling [Recovered/Resolved]
  - Lactic acidosis [Recovered/Resolved]
  - Dyspnoea [Recovered/Resolved]
  - Epistaxis [Recovered/Resolved]
  - Fatigue [Recovered/Resolved]
